FAERS Safety Report 8172619-6 (Version None)
Quarter: 2012Q1

REPORT INFORMATION
  Report Type: 
  Country: None (occurrence: None)
  Receive Date: 20120229
  Receipt Date: 20120224
  Transmission Date: 20120608
  Serious: Yes (Other)
  Sender: FDA-Public Use
  Company Number: US-PFIZER INC-2011197809

PATIENT
  Sex: Male

DRUGS (5)
  1. METFORMIN [Concomitant]
     Indication: DIABETES MELLITUS
     Dosage: UNK
     Dates: start: 20070101, end: 20090101
  2. LISINOPRIL [Concomitant]
     Indication: HYPERTENSION
     Dosage: UNK
     Dates: start: 20070101
  3. CHANTIX [Suspect]
     Indication: SMOKING CESSATION THERAPY
     Dosage: STARTING PACK AND 1MG CONTINUING PACK
     Dates: start: 20080403, end: 20080530
  4. LIPITOR [Concomitant]
     Indication: MYOCARDIAL INFARCTION
     Dosage: UNK
     Dates: start: 20070101
  5. LIPITOR [Concomitant]
     Indication: CEREBROVASCULAR ACCIDENT PROPHYLAXIS

REACTIONS (5)
  - DEPRESSION [None]
  - NIGHTMARE [None]
  - MOOD SWINGS [None]
  - AGGRESSION [None]
  - SUICIDAL IDEATION [None]
